FAERS Safety Report 8181909-2 (Version None)
Quarter: 2012Q1

REPORT INFORMATION
  Report Type: 
  Country: None (occurrence: None)
  Receive Date: 20120302
  Receipt Date: 20120228
  Transmission Date: 20120608
  Serious: Yes (Other)
  Sender: FDA-Public Use
  Company Number: US-ABBOTT-11P-163-0852362-00

PATIENT
  Sex: Female

DRUGS (4)
  1. ANDROGEL [Suspect]
     Indication: ACCIDENTAL EXPOSURE
     Route: 062
  2. ANDROGEL [Suspect]
     Indication: BLOOD TESTOSTERONE DECREASED
  3. ANDROGEL [Suspect]
     Indication: ACCIDENTAL EXPOSURE
     Route: 062
  4. ANDROGEL [Suspect]
     Indication: BLOOD TESTOSTERONE DECREASED

REACTIONS (1)
  - ABORTION SPONTANEOUS [None]
